FAERS Safety Report 5360601-3 (Version None)
Quarter: 2007Q2

REPORT INFORMATION
  Report Type: 
  Country: None (occurrence: None)
  Receive Date: 20070530
  Receipt Date: 20070327
  Transmission Date: 20071010
  Serious: No
  Sender: FDA-Public Use
  Company Number: 2007PV032493

PATIENT
  Age: 59 Year
  Sex: Male
  Weight: 112.4921 kg

DRUGS (4)
  1. BYETTA [Suspect]
     Indication: DIABETES MELLITUS NON-INSULIN-DEPENDENT
     Dosage: 5 MCG; BID; SC
     Route: 058
     Dates: start: 20070319
  2. METFORMIN HCL [Concomitant]
  3. GLYBURIDE [Concomitant]
  4. ACTOS [Concomitant]

REACTIONS (1)
  - POLLAKIURIA [None]
